FAERS Safety Report 17862055 (Version 1)
Quarter: 2020Q2

REPORT INFORMATION
  Report Type: Report from Study
  Country: FR (occurrence: FR)
  Receive Date: 20200604
  Receipt Date: 20200604
  Transmission Date: 20200714
  Serious: Yes (Other)
  Sender: FDA-Public Use
  Company Number: NVSC2020FR153505

PATIENT
  Age: 2 Month
  Sex: Female
  Weight: 6 kg

DRUGS (4)
  1. SOLUPRED [Concomitant]
     Indication: THERAPEUTIC PROCEDURE
     Dosage: 12 MG
     Route: 048
     Dates: start: 20200511, end: 20200514
  2. ONASEMNOGENE ABEPARVOVEC [Suspect]
     Active Substance: ONASEMNOGENE ABEPARVOVEC
     Indication: SPINAL MUSCULAR ATROPHY
     Dosage: 6.6X1014 COPIES OF THE GENOME VECTOR
     Route: 041
     Dates: start: 20200512
  3. SOLUPRED [Concomitant]
     Dosage: 6 MG
     Route: 048
     Dates: start: 20200514
  4. FONX [Concomitant]
     Active Substance: OXICONAZOLE NITRATE
     Indication: FUNGAL INFECTION
     Dosage: 1 OT, QD (APPLICATION)
     Route: 061
     Dates: start: 20200430

REACTIONS (5)
  - Cell death [Not Recovered/Not Resolved]
  - Aspartate aminotransferase abnormal [Unknown]
  - Pyrexia [Not Recovered/Not Resolved]
  - Thrombocytopenia [Recovered/Resolved]
  - Tachycardia [Unknown]

NARRATIVE: CASE EVENT DATE: 20200515
